FAERS Safety Report 5346141-6 (Version None)
Quarter: 2007Q2

REPORT INFORMATION
  Report Type: 
  Country: None (occurrence: None)
  Receive Date: 20070605
  Receipt Date: 20070524
  Transmission Date: 20071010
  Serious: Yes (Other)
  Sender: FDA-Public Use
  Company Number: FR-KINGPHARMUSA00001-K200700456

PATIENT

DRUGS (2)
  1. SYNERCID [Suspect]
  2. RIFADIN [Suspect]

REACTIONS (1)
  - ANAEMIA [None]
